FAERS Safety Report 8169421-8 (Version None)
Quarter: 2012Q1

REPORT INFORMATION
  Report Type: 
  Country: None (occurrence: None)
  Receive Date: 20120222
  Receipt Date: 20120213
  Transmission Date: 20120608
  Serious: Yes (Disabling, Other)
  Sender: FDA-Public Use
  Company Number: ACO_28382_2011

PATIENT
  Age: 40 Year
  Sex: Female

DRUGS (3)
  1. AMPYRA [Suspect]
     Dates: start: 20101201, end: 20101201
  2. REBIF [Suspect]
     Indication: MULTIPLE SCLEROSIS
     Dosage: 44UG, 3 IN 1 WEEK, SUBCUTANEOUS, 22 UG, 3 IN 1 WEEK
     Route: 058
     Dates: start: 20111121
  3. REBIF [Suspect]
     Indication: MULTIPLE SCLEROSIS
     Dosage: 44UG, 3 IN 1 WEEK, SUBCUTANEOUS, 22 UG, 3 IN 1 WEEK
     Route: 058
     Dates: start: 20050201, end: 20111001

REACTIONS (4)
  - HEMIPLEGIA [None]
  - MALAISE [None]
  - INFLUENZA LIKE ILLNESS [None]
  - MULTIPLE SCLEROSIS [None]
